FAERS Safety Report 8906472 (Version 1)
Quarter: 2012Q4

REPORT INFORMATION
  Report Type: Spontaneous
  Country: US (occurrence: None)
  Receive Date: 20121113
  Receipt Date: 20121113
  Transmission Date: 20130627
  Serious: No
  Sender: FDA-Public Use
  Company Number: None

PATIENT
  Age: 55 Year
  Sex: Male
  Weight: 106.6 kg

DRUGS (1)
  1. HYDROMORPHONE [Suspect]
     Indication: DRUG INEFFECTIVE
     Dates: start: 20121017

REACTIONS (1)
  - Drug ineffective [None]
